FAERS Safety Report 17594754 (Version 3)
Quarter: 2022Q1

REPORT INFORMATION
  Report Type: Report from Study
  Country: GB (occurrence: GB)
  Receive Date: 20200327
  Receipt Date: 20220216
  Transmission Date: 20220423
  Serious: Yes (Hospitalization, Other)
  Sender: FDA-Public Use
  Company Number: GB-ABBVIE-19P-167-2869162-00

PATIENT
  Age: 15 Year
  Sex: Female
  Weight: 57.4 kg

DRUGS (72)
  1. HUMIRA [Suspect]
     Active Substance: ADALIMUMAB
     Indication: Crohn^s disease
     Route: 058
     Dates: start: 20131209, end: 20180430
  2. HUMIRA [Suspect]
     Active Substance: ADALIMUMAB
     Route: 058
     Dates: start: 20180507, end: 20190325
  3. AZATHIOPRINE [Suspect]
     Active Substance: AZATHIOPRINE
     Indication: Crohn^s disease
     Route: 048
     Dates: start: 20121011, end: 20181011
  4. METHOTREXATE [Suspect]
     Active Substance: METHOTREXATE
     Indication: Crohn^s disease
     Route: 048
     Dates: start: 20181018
  5. CHLORPHENIRAMINE MALEATE [Concomitant]
     Active Substance: CHLORPHENIRAMINE MALEATE
     Indication: Pruritus
     Route: 048
     Dates: start: 20190704
  6. FOLIC ACID [Concomitant]
     Active Substance: FOLIC ACID
     Indication: Vitamin supplementation
     Route: 048
     Dates: start: 20181018, end: 20190615
  7. FOLIC ACID [Concomitant]
     Active Substance: FOLIC ACID
     Dosage: FREQUENCY: ONCE WEEKLY NOT ON SAME DAY AS METHOTREXATE
     Route: 048
     Dates: start: 20190629
  8. MOVICOL [Concomitant]
     Active Substance: POLYETHYLENE GLYCOL 3350\POTASSIUM CHLORIDE\SODIUM BICARBONATE\SODIUM CHLORIDE
     Indication: Laxative supportive care
     Route: 048
     Dates: start: 20150811, end: 20190228
  9. MOVICOL [Concomitant]
     Active Substance: POLYETHYLENE GLYCOL 3350\POTASSIUM CHLORIDE\SODIUM BICARBONATE\SODIUM CHLORIDE
     Route: 048
     Dates: start: 20190608, end: 20190611
  10. MOVICOL [Concomitant]
     Active Substance: POLYETHYLENE GLYCOL 3350\POTASSIUM CHLORIDE\SODIUM BICARBONATE\SODIUM CHLORIDE
     Route: 048
     Dates: start: 20190711, end: 20190715
  11. NUTRISON MULTIFIBRE [Concomitant]
     Indication: Enteral nutrition
     Dosage: DOSE: 300-1020 ML
     Route: 050
     Dates: start: 20190628, end: 20190630
  12. NUTRISON MULTIFIBRE [Concomitant]
     Dosage: DOSE: 1800-2400 ML
     Route: 050
     Dates: start: 20190701
  13. ONDANSETRON [Concomitant]
     Active Substance: ONDANSETRON
     Indication: Nausea
     Route: 048
     Dates: start: 20190308, end: 20190311
  14. ONDANSETRON [Concomitant]
     Active Substance: ONDANSETRON
     Indication: Vomiting
     Route: 048
     Dates: start: 20190311, end: 20190618
  15. ONDANSETRON [Concomitant]
     Active Substance: ONDANSETRON
     Route: 042
     Dates: start: 20190619, end: 20190625
  16. ONDANSETRON [Concomitant]
     Active Substance: ONDANSETRON
     Route: 048
     Dates: start: 20190701
  17. ACETAMINOPHEN [Concomitant]
     Active Substance: ACETAMINOPHEN
     Indication: Pain
     Route: 048
     Dates: start: 20181005, end: 20190220
  18. ACETAMINOPHEN [Concomitant]
     Active Substance: ACETAMINOPHEN
     Dosage: 750-800 MG
     Route: 048
     Dates: start: 20190227, end: 20190302
  19. ACETAMINOPHEN [Concomitant]
     Active Substance: ACETAMINOPHEN
     Route: 042
     Dates: start: 20190302, end: 20190314
  20. ACETAMINOPHEN [Concomitant]
     Active Substance: ACETAMINOPHEN
     Route: 048
     Dates: start: 20190314, end: 20190327
  21. ACETAMINOPHEN [Concomitant]
     Active Substance: ACETAMINOPHEN
     Route: 048
     Dates: start: 20190407, end: 20190618
  22. ACETAMINOPHEN [Concomitant]
     Active Substance: ACETAMINOPHEN
     Route: 042
     Dates: start: 20190618, end: 20190620
  23. ACETAMINOPHEN [Concomitant]
     Active Substance: ACETAMINOPHEN
     Route: 042
     Dates: start: 20190620, end: 20190626
  24. ACETAMINOPHEN [Concomitant]
     Active Substance: ACETAMINOPHEN
     Route: 048
     Dates: start: 20190626
  25. SODIUM FEREDETATE [Concomitant]
     Active Substance: SODIUM FEREDETATE
     Indication: Mineral supplementation
     Route: 048
     Dates: start: 20140425, end: 20140716
  26. SODIUM PICOSULFATE [Concomitant]
     Active Substance: SODIUM PICOSULFATE
     Indication: Laxative supportive care
     Route: 048
     Dates: start: 20150811, end: 20190220
  27. SODIUM PICOSULFATE [Concomitant]
     Active Substance: SODIUM PICOSULFATE
     Indication: Endoscopy
     Route: 048
     Dates: start: 20190228, end: 20190228
  28. SODIUM PICOSULFATE [Concomitant]
     Active Substance: SODIUM PICOSULFATE
     Route: 048
     Dates: start: 20190304, end: 20190308
  29. SODIUM PICOSULFATE [Concomitant]
     Active Substance: SODIUM PICOSULFATE
     Route: 048
     Dates: start: 20190308, end: 20190314
  30. SODIUM PICOSULFATE [Concomitant]
     Active Substance: SODIUM PICOSULFATE
     Route: 048
     Dates: start: 20190315, end: 20190320
  31. SODIUM PICOSULFATE [Concomitant]
     Active Substance: SODIUM PICOSULFATE
     Route: 048
     Dates: start: 20190320, end: 20190617
  32. SODIUM PICOSULFATE [Concomitant]
     Active Substance: SODIUM PICOSULFATE
     Route: 048
     Dates: start: 20190706, end: 20190708
  33. SODIUM PICOSULFATE [Concomitant]
     Active Substance: SODIUM PICOSULFATE
     Route: 048
     Dates: start: 20190709
  34. DICYCLOMINE HYDROCHLORIDE [Concomitant]
     Active Substance: DICYCLOMINE HYDROCHLORIDE
     Indication: Crohn^s disease
     Route: 048
     Dates: start: 20141201
  35. MELATONIN [Concomitant]
     Active Substance: MELATONIN
     Indication: Sleep disorder therapy
     Dosage: DOSE: 2-4 MG
     Route: 048
     Dates: start: 20190305, end: 20191001
  36. DOMPERIDONE MALEATE [Concomitant]
     Active Substance: DOMPERIDONE MALEATE
     Indication: Nausea
     Route: 048
     Dates: start: 20190308, end: 20190618
  37. DOMPERIDONE MALEATE [Concomitant]
     Active Substance: DOMPERIDONE MALEATE
     Indication: Vomiting
  38. DOMPERIDONE MALEATE [Concomitant]
     Active Substance: DOMPERIDONE MALEATE
     Indication: Gastrooesophageal reflux disease
  39. GABAPENTIN [Concomitant]
     Active Substance: GABAPENTIN
     Indication: Pain management
     Route: 048
     Dates: start: 20190305, end: 20190321
  40. GABAPENTIN [Concomitant]
     Active Substance: GABAPENTIN
     Route: 048
     Dates: start: 20190321, end: 20190618
  41. BISACODYL [Concomitant]
     Active Substance: BISACODYL
     Indication: Constipation
     Route: 048
     Dates: start: 20190327, end: 20190407
  42. DOCUSATE SODIUM [Concomitant]
     Active Substance: DOCUSATE SODIUM
     Indication: Constipation
     Route: 048
     Dates: start: 20190228, end: 20190802
  43. DOCUSATE SODIUM [Concomitant]
     Active Substance: DOCUSATE SODIUM
     Indication: Constipation prophylaxis
     Route: 048
     Dates: start: 20190802
  44. KLEAN-PREP [Concomitant]
     Active Substance: ELECTROLYTES NOS\POLYETHYLENE GLYCOL 3350
     Indication: Constipation
     Route: 048
     Dates: start: 20190315, end: 20190315
  45. KLEAN-PREP [Concomitant]
     Active Substance: ELECTROLYTES NOS\POLYETHYLENE GLYCOL 3350
     Route: 048
     Dates: start: 20190317, end: 20190317
  46. KLEAN-PREP [Concomitant]
     Active Substance: ELECTROLYTES NOS\POLYETHYLENE GLYCOL 3350
     Route: 048
     Dates: start: 20190710, end: 20190710
  47. NEOCATE JUNIOR [Concomitant]
     Indication: Crohn^s disease
     Route: 050
     Dates: start: 20190304, end: 20190616
  48. SODIUM PHOSPHATE [Concomitant]
     Active Substance: SODIUM PHOSPHATE
     Indication: Constipation
     Dosage: START DOSE
     Route: 054
     Dates: start: 20190228, end: 20190228
  49. SODIUM PHOSPHATE [Concomitant]
     Active Substance: SODIUM PHOSPHATE
     Indication: Bowel preparation
     Route: 054
     Dates: start: 20190314, end: 20190314
  50. SODIUM PHOSPHATE [Concomitant]
     Active Substance: SODIUM PHOSPHATE
     Indication: Gastrointestinal motility disorder
     Dosage: 100-115 ML (MILLILITER) ?ENEMA
     Route: 054
     Dates: start: 20190703, end: 20190711
  51. SENNA [Concomitant]
     Active Substance: SENNA LEAF\SENNOSIDES\SENNOSIDES A AND B
     Indication: Constipation
     Route: 048
     Dates: start: 20190407, end: 20190617
  52. SENNA [Concomitant]
     Active Substance: SENNA LEAF\SENNOSIDES\SENNOSIDES A AND B
     Route: 048
     Dates: start: 20190701, end: 20190704
  53. TRAMADOL [Concomitant]
     Active Substance: TRAMADOL
     Indication: Pain management
     Route: 041
     Dates: start: 20190302, end: 20190314
  54. TRAMADOL [Concomitant]
     Active Substance: TRAMADOL
     Route: 048
     Dates: start: 20190315, end: 20190407
  55. TRAMADOL [Concomitant]
     Active Substance: TRAMADOL
     Route: 048
     Dates: start: 20190407, end: 20190417
  56. TRAMADOL [Concomitant]
     Active Substance: TRAMADOL
     Route: 048
     Dates: start: 20190417, end: 20190618
  57. TRAMADOL [Concomitant]
     Active Substance: TRAMADOL
     Route: 048
     Dates: start: 20190707, end: 20190707
  58. AMOXICILLIN\CLAVULANATE POTASSIUM [Concomitant]
     Active Substance: AMOXICILLIN\CLAVULANATE POTASSIUM
     Indication: Prophylaxis
     Route: 042
     Dates: start: 20190618, end: 20190620
  59. FUROSEMIDE [Concomitant]
     Active Substance: FUROSEMIDE
     Indication: Pulmonary oedema
     Dosage: START DOSE
     Route: 042
     Dates: start: 20190620, end: 20190620
  60. FUROSEMIDE [Concomitant]
     Active Substance: FUROSEMIDE
     Dosage: START DOSE
     Route: 042
     Dates: start: 20190621, end: 20190621
  61. PIPERACILLIN SODIUM\TAZOBACTAM SODIUM [Concomitant]
     Active Substance: PIPERACILLIN SODIUM\TAZOBACTAM SODIUM
     Indication: Pneumonia
     Route: 042
     Dates: start: 20190620, end: 20190625
  62. CLONIDINE [Concomitant]
     Active Substance: CLONIDINE
     Indication: Anxiety
     Dosage: SINGLE DOSE
     Route: 048
     Dates: start: 20190618, end: 20190618
  63. DIAZEPAM [Concomitant]
     Active Substance: DIAZEPAM
     Indication: Anxiety
     Dosage: SINGLE DOSE
     Route: 040
     Dates: start: 20190620, end: 20190620
  64. DIAZEPAM [Concomitant]
     Active Substance: DIAZEPAM
     Indication: Agitation
  65. DIAZEPAM [Concomitant]
     Active Substance: DIAZEPAM
     Indication: Adverse drug reaction
  66. ENOXAPARIN SODIUM [Concomitant]
     Active Substance: ENOXAPARIN SODIUM
     Indication: Prophylaxis
     Route: 058
     Dates: start: 20190618, end: 20190625
  67. SODIUM CHLORIDE/ELCTROLYTES [Concomitant]
     Indication: Fluid replacement
     Dosage: 40-101.6 ML (MILLILITER)
     Route: 041
     Dates: start: 20190618, end: 20190629
  68. RANITIDINE [Concomitant]
     Active Substance: RANITIDINE
     Indication: Gastritis
     Route: 048
     Dates: start: 20190626, end: 20191001
  69. CYCLIZINE [Concomitant]
     Active Substance: CYCLIZINE
     Indication: Nausea
     Route: 048
     Dates: start: 20190720, end: 20190720
  70. CYCLIZINE [Concomitant]
     Active Substance: CYCLIZINE
     Indication: Vomiting
     Route: 048
     Dates: start: 20190728, end: 20190728
  71. DICYCLOMINE HYDROCHLORIDE [Concomitant]
     Active Substance: DICYCLOMINE HYDROCHLORIDE
     Indication: Crohn^s disease
     Route: 048
     Dates: start: 20141201
  72. POLYETHYLENE GLYCOLS [Concomitant]
     Active Substance: POLYETHYLENE GLYCOLS
     Indication: Constipation
     Dosage: 1-2 SACHETS
     Route: 048
     Dates: start: 20190301, end: 20190411

REACTIONS (3)
  - Constipation [Recovered/Resolved]
  - Staphylococcus test positive [Recovered/Resolved]
  - Postoperative wound infection [Recovered/Resolved]

NARRATIVE: CASE EVENT DATE: 20190711
